FAERS Safety Report 4519803-8 (Version None)
Quarter: 2004Q4

REPORT INFORMATION
  Report Type: 
  Country: None (occurrence: None)
  Receive Date: 20041202
  Receipt Date: 20041202
  Transmission Date: 20050328
  Serious: Yes (Death, Life-Threatening, Hospitalization)
  Sender: FDA-Public Use
  Company Number: None

PATIENT
  Sex: Male
  Weight: 81.6475 kg

DRUGS (7)
  1. VOLTAREN-XR [Suspect]
     Indication: HIP ARTHROPLASTY
     Dosage: 100  MG DAILY
  2. VOLTAREN-XR [Suspect]
     Indication: OSTEOARTHRITIS
     Dosage: 100  MG DAILY
  3. VOLTAREN [Suspect]
     Dosage: 75 MG DAILY
  4. METOPROLOL [Concomitant]
  5. HYDROCHLOROTHIAZIDE [Concomitant]
  6. ALLOPURINOL [Concomitant]
  7. COLCHICINE [Concomitant]

REACTIONS (9)
  - ANOREXIA [None]
  - ASCITES [None]
  - ASTHENIA [None]
  - CONFUSIONAL STATE [None]
  - FLUID RETENTION [None]
  - GASTROINTESTINAL ULCER HAEMORRHAGE [None]
  - HEPATIC CIRRHOSIS [None]
  - JAUNDICE [None]
  - PLATELET COUNT DECREASED [None]
